FAERS Safety Report 8357997-7 (Version None)
Quarter: 2012Q2

REPORT INFORMATION
  Report Type: 
  Country: None (occurrence: None)
  Receive Date: 20120514
  Receipt Date: 20120503
  Transmission Date: 20120825
  Serious: Yes (Other)
  Sender: FDA-Public Use
  Company Number: CA-JNJFOC-20120310232

PATIENT
  Age: 79 Year
  Sex: Male

DRUGS (3)
  1. ZYTIGA [Suspect]
     Indication: PROSTATE CANCER
     Route: 048
     Dates: start: 20120126
  2. LHRH AGONIST [Concomitant]
     Route: 065
  3. PREDNISONE [Concomitant]
     Route: 065

REACTIONS (4)
  - LIVER FUNCTION TEST ABNORMAL [None]
  - BLOOD ALKALINE PHOSPHATASE INCREASED [None]
  - PROSTATIC SPECIFIC ANTIGEN INCREASED [None]
  - PROSTATE CANCER [None]
